FAERS Safety Report 14024161 (Version 2)
Quarter: 2019Q2

REPORT INFORMATION
  Report Type: Report from Study
  Country: JP (occurrence: JP)
  Receive Date: 20170929
  Receipt Date: 20190419
  Transmission Date: 20190711
  Serious: Yes (Hospitalization, Other)
  Sender: FDA-Public Use
  Company Number: JP-JNJFOC-20170819871

PATIENT
  Age: 88 Year
  Sex: Female
  Weight: 50 kg

DRUGS (13)
  1. ARICEPT [Concomitant]
     Active Substance: DONEPEZIL HYDROCHLORIDE
     Route: 048
  2. JANUVIA [Concomitant]
     Active Substance: SITAGLIPTIN PHOSPHATE
     Route: 048
  3. FRANDOL [Concomitant]
     Active Substance: ISOSORBIDE DINITRATE
     Route: 048
  4. XARELTO [Suspect]
     Active Substance: RIVAROXABAN
     Indication: CEREBROVASCULAR ACCIDENT PROPHYLAXIS
     Route: 048
     Dates: start: 20130625, end: 20170726
  5. MAGMITT [Concomitant]
     Active Substance: MAGNESIUM OXIDE
     Route: 048
  6. DIGOXIN. [Concomitant]
     Active Substance: DIGOXIN
     Route: 048
  7. ATELEC [Concomitant]
     Active Substance: CILNIDIPINE
     Route: 048
  8. EDOXABAN [Concomitant]
     Active Substance: EDOXABAN TOSYLATE
     Route: 048
  9. TANATRIL [Concomitant]
     Active Substance: IMIDAPRIL
     Route: 048
  10. MEVALOTIN [Concomitant]
     Active Substance: PRAVASTATIN SODIUM
     Route: 048
  11. RT-PA [Concomitant]
     Active Substance: ALTEPLASE
     Route: 065
  12. DIART [Concomitant]
     Active Substance: AZOSEMIDE
     Route: 048
  13. TAKEPRON [Concomitant]
     Active Substance: LANSOPRAZOLE
     Route: 048

REACTIONS (3)
  - Iron deficiency anaemia [Recovered/Resolved]
  - Uterine haemorrhage [Recovered/Resolved]
  - Embolic stroke [Recovering/Resolving]

NARRATIVE: CASE EVENT DATE: 20131218
